FAERS Safety Report 9769423 (Version 1)
Quarter: 2013Q4

REPORT INFORMATION
  Report Type: Report from Study
  Country: BR (occurrence: BR)
  Receive Date: 20131218
  Receipt Date: 20131218
  Transmission Date: 20140711
  Serious: Yes (Hospitalization)
  Sender: FDA-Public Use
  Company Number: PHHY2013BR147929

PATIENT
  Age: 85 Year
  Sex: Female
  Weight: 65 kg

DRUGS (6)
  1. ACLASTA [Suspect]
     Indication: OSTEOPOROSIS
     Dosage: 5 MG, UNK
     Route: 042
     Dates: start: 2012
  2. LOSARTAN [Concomitant]
     Dosage: UNK UKN, UNK
  3. INSULIN [Concomitant]
     Dosage: UNK UKN, UNK
     Dates: start: 201309
  4. OMEPRAZOLE [Concomitant]
     Dosage: UNK UKN, UNK
  5. ATORVASTATIN [Concomitant]
     Dosage: UNK UKN, UNK
     Dates: start: 2008
  6. ASPIRINA [Concomitant]
     Dosage: UNK UKN, UNK

REACTIONS (5)
  - Pancreatic carcinoma [Not Recovered/Not Resolved]
  - Cerebrovascular accident [Not Recovered/Not Resolved]
  - Rib fracture [Not Recovered/Not Resolved]
  - Weight decreased [Not Recovered/Not Resolved]
  - Pain [Not Recovered/Not Resolved]
